FAERS Safety Report 5468780-4 (Version None)
Quarter: 2007Q3

REPORT INFORMATION
  Report Type: 
  Country: None (occurrence: None)
  Receive Date: 20070926
  Receipt Date: 20070917
  Transmission Date: 20080115
  Serious: Yes (Hospitalization, Other)
  Sender: FDA-Public Use
  Company Number: GB-PFIZER INC-2007041547

PATIENT
  Age: 63 Year
  Sex: Female

DRUGS (5)
  1. DETRUSITOL XL [Suspect]
     Indication: POLLAKIURIA
     Route: 048
  2. CARDICOR [Concomitant]
  3. EPILIM [Concomitant]
  4. LANSOPRAZOLE [Concomitant]
  5. ALL OTHER THERAPEUTIC PRODUCTS [Concomitant]

REACTIONS (19)
  - ABDOMINAL DISTENSION [None]
  - ABDOMINAL PAIN [None]
  - ANGINA PECTORIS [None]
  - ARRHYTHMIA [None]
  - ARTERIAL DISORDER [None]
  - BLOOD PRESSURE INCREASED [None]
  - CHEST PAIN [None]
  - CHOLELITHOTOMY [None]
  - DRUG INEFFECTIVE [None]
  - DRY SKIN [None]
  - ERUCTATION [None]
  - FLATULENCE [None]
  - HOT FLUSH [None]
  - NAUSEA [None]
  - PALPITATIONS [None]
  - RETCHING [None]
  - SUICIDAL IDEATION [None]
  - URINE COLOUR ABNORMAL [None]
  - URINE OUTPUT DECREASED [None]
